FAERS Safety Report 12906709 (Version 1)
Quarter: 2016Q4

REPORT INFORMATION
  Report Type: Spontaneous
  Country: US (occurrence: US)
  Receive Date: 20161103
  Receipt Date: 20161103
  Transmission Date: 20170207
  Serious: No
  Sender: FDA-Public Use
  Company Number: US-INCYTE CORPORATION-2016IN006845

PATIENT
  Age: 68 Year
  Sex: Male

DRUGS (1)
  1. JAKAFI [Suspect]
     Active Substance: RUXOLITINIB
     Indication: MYELOFIBROSIS
     Dosage: 10 MG ODD DAYS AND 20 MG EVEN DAYS
     Route: 048
     Dates: start: 20160619

REACTIONS (2)
  - Abdominal distension [Unknown]
  - Increased appetite [Unknown]

NARRATIVE: CASE EVENT DATE: 20160926
